FAERS Safety Report 21135541 (Version 1)
Quarter: 2022Q3

REPORT INFORMATION
  Report Type: Spontaneous
  Country: None (occurrence: US)
  Receive Date: 20220727
  Receipt Date: 20220727
  Transmission Date: 20221027
  Serious: No
  Sender: FDA-Public Use
  Company Number: US-ITALFARMACO SPA-2131273

PATIENT
  Age: 64 Year
  Sex: Male

DRUGS (12)
  1. TIGLUTIK [Suspect]
     Active Substance: RILUZOLE
     Dates: start: 20210904, end: 202202
  2. BACLOFEN [Concomitant]
     Active Substance: BACLOFEN
  3. BUPHENYL [Concomitant]
     Active Substance: SODIUM PHENYLBUTYRATE
  4. CLONAZEPAM [Concomitant]
     Active Substance: CLONAZEPAM
  5. FENTANYL [Concomitant]
     Active Substance: FENTANYL
  6. ENSURE PLUS : CARBOHYDRATES NOS, ELECTROLYTES NOS, FATTY ACIDS NOS, MI [Concomitant]
  7. LOSARTAN [Concomitant]
     Active Substance: LOSARTAN
  8. MIRALAX [Concomitant]
     Active Substance: POLYETHYLENE GLYCOL 3350
  9. OXYBUTYNIN. [Concomitant]
     Active Substance: OXYBUTYNIN CHLORIDE
  10. SIMETHICONE (DIMETHICONE) [Concomitant]
     Active Substance: DIMETHICONE
  11. TUDCABIL: URSODOXICOLTAURINE [Concomitant]
  12. ZOLPIDEM [Concomitant]
     Active Substance: ZOLPIDEM TARTRATE

REACTIONS (2)
  - Jaundice [Unknown]
  - Dyspnoea [Unknown]

NARRATIVE: CASE EVENT DATE: 20220216
